FAERS Safety Report 9824622 (Version 2)
Quarter: 2014Q1

REPORT INFORMATION
  Report Type: Spontaneous
  Country: US (occurrence: US)
  Receive Date: 20140117
  Receipt Date: 20140117
  Transmission Date: 20141002
  Serious: No
  Sender: FDA-Public Use
  Company Number: US-GILEAD-2011-0039113

PATIENT
  Sex: Male

DRUGS (3)
  1. LETAIRIS [Suspect]
     Indication: PULMONARY HYPERTENSION
     Route: 048
     Dates: start: 20090220, end: 20100624
  2. TREPROSTINIL [Concomitant]
  3. ADCIRCA [Concomitant]

REACTIONS (2)
  - Diastolic dysfunction [Unknown]
  - Fluid retention [Unknown]
